FAERS Safety Report 5489652-5 (Version None)
Quarter: 2007Q4

REPORT INFORMATION
  Report Type: 
  Country: None (occurrence: None)
  Receive Date: 20071018
  Receipt Date: 20071012
  Transmission Date: 20080405
  Serious: Yes (Hospitalization)
  Sender: FDA-Public Use
  Company Number: B0481996A

PATIENT
  Age: 27 Year
  Sex: Male
  Weight: 89 kg

DRUGS (9)
  1. PAXIL [Suspect]
     Indication: MAJOR DEPRESSION
     Route: 048
     Dates: start: 20070522, end: 20070801
  2. HALCION [Suspect]
     Route: 048
  3. SILECE [Suspect]
     Indication: MAJOR DEPRESSION
     Dosage: 2MG PER DAY
     Route: 048
     Dates: start: 20070529, end: 20070709
  4. AMOBAN [Suspect]
     Indication: MAJOR DEPRESSION
     Dosage: 7.5MG PER DAY
     Route: 048
     Dates: start: 20070710, end: 20070806
  5. SOLANAX [Suspect]
     Indication: MAJOR DEPRESSION
     Dosage: .4MG PER DAY
     Route: 048
     Dates: start: 20070626, end: 20070709
  6. DOGMATYL [Concomitant]
     Route: 048
  7. ZOLPIDEM [Concomitant]
     Indication: INSOMNIA
     Dosage: 10MG PER DAY
     Route: 048
     Dates: start: 20070522, end: 20070710
  8. RHYTHMY [Concomitant]
     Indication: MAJOR DEPRESSION
     Dosage: 1MG PER DAY
     Route: 048
     Dates: start: 20070710
  9. DIOVAN [Concomitant]
     Indication: HYPERTENSION
     Dosage: 80MG PER DAY
     Route: 048
     Dates: start: 20070710

REACTIONS (2)
  - DISINHIBITION [None]
  - SELF MUTILATION [None]
